FAERS Safety Report 6495903-0 (Version None)
Quarter: 2009Q4

REPORT INFORMATION
  Report Type: 
  Country: None (occurrence: None)
  Receive Date: 20091214
  Receipt Date: 20090827
  Transmission Date: 20100525
  Serious: Yes (Other)
  Sender: FDA-Public Use
  Company Number: US-BRISTOL-MYERS SQUIBB COMPANY-14755821

PATIENT
  Sex: Male

DRUGS (2)
  1. ABILIFY [Suspect]
     Route: 048
  2. LEXAPRO [Suspect]

REACTIONS (3)
  - FATIGUE [None]
  - GRAND MAL CONVULSION [None]
  - INSOMNIA [None]
